FAERS Safety Report 14259198 (Version 1)
Quarter: 2017Q4

REPORT INFORMATION
  Report Type: Spontaneous
  Country: US (occurrence: US)
  Receive Date: 20171207
  Receipt Date: 20171207
  Transmission Date: 20180321
  Serious: Yes (Other)
  Sender: FDA-Public Use
  Company Number: None

PATIENT
  Age: 76 Year
  Sex: Female
  Weight: 76.5 kg

DRUGS (6)
  1. HYDROCHLORATHIAZIDE [Concomitant]
     Active Substance: HYDROCHLOROTHIAZIDE
  2. FISH OIL [Concomitant]
     Active Substance: FISH OIL
  3. POTASSIUM [Concomitant]
     Active Substance: POTASSIUM
  4. QUINAPRIL GENERIC [Suspect]
     Active Substance: QUINAPRIL
     Indication: BLOOD PRESSURE MEASUREMENT
     Dosage: ?          QUANTITY:360 TABLET(S);?
     Route: 048
     Dates: start: 20171102, end: 20171116
  5. VITAMIN D [Concomitant]
     Active Substance: CHOLECALCIFEROL
  6. MAGNESIUM [Concomitant]
     Active Substance: MAGNESIUM

REACTIONS (6)
  - Hypersensitivity [None]
  - Drug dose omission [None]
  - Arthralgia [None]
  - Erythema [None]
  - Motor dysfunction [None]
  - Joint swelling [None]

NARRATIVE: CASE EVENT DATE: 20171118
